FAERS Safety Report 5672666-X (Version None)
Quarter: 2008Q1

REPORT INFORMATION
  Report Type: 
  Country: None (occurrence: None)
  Receive Date: 20080319
  Receipt Date: 20071024
  Transmission Date: 20080703
  Serious: No
  Sender: FDA-Public Use
  Company Number: US-KINGPHARMUSA00001-K200701380

PATIENT

DRUGS (7)
  1. ALTACE [Suspect]
     Indication: HYPERTENSION
     Dosage: 2.5 MG, QD
     Route: 048
     Dates: start: 20070901, end: 20071001
  2. ALTACE [Suspect]
     Dosage: 5 MG, QD
     Route: 048
     Dates: start: 20071001, end: 20071001
  3. ALTACE [Suspect]
     Dosage: 2.5 MG, QD
     Route: 048
     Dates: start: 20071001, end: 20071001
  4. ALTACE [Suspect]
     Dosage: 2.5 MG, QD
     Route: 048
     Dates: start: 20071023, end: 20071023
  5. LEVOTHYROXINE SODIUM [Concomitant]
     Indication: THYROID DISORDER
     Dosage: 25 MCG, QD
     Route: 048
  6. CIMETIDINE [Concomitant]
     Indication: GASTROOESOPHAGEAL REFLUX DISEASE
     Dosage: 400 MG, QD
     Route: 048
  7. XANAX [Concomitant]
     Dosage: .5 MG, QD
     Route: 048

REACTIONS (4)
  - COUGH [None]
  - DYSPHONIA [None]
  - GASTROINTESTINAL DISORDER [None]
  - SENSATION OF FOREIGN BODY [None]
